FAERS Safety Report 4351589-2 (Version None)
Quarter: 2004Q2

REPORT INFORMATION
  Report Type: 
  Country: None (occurrence: None)
  Receive Date: 20040503
  Receipt Date: 20040420
  Transmission Date: 20050107
  Serious: Yes (Death, Hospitalization)
  Sender: FDA-Public Use
  Company Number: BE-MERCK-0404BEL00028

PATIENT
  Age: 10 Year
  Sex: Male

DRUGS (1)
  1. SINGULAIR [Suspect]
     Indication: ASTHMA
     Route: 048

REACTIONS (3)
  - ALLERGIC GRANULOMATOUS ANGIITIS [None]
  - CARDIAC DISORDER [None]
  - DEATH [None]
